FAERS Safety Report 6230170-4 (Version None)
Quarter: 2009Q2

REPORT INFORMATION
  Report Type: 
  Country: None (occurrence: None)
  Receive Date: 20090615
  Receipt Date: 20090608
  Transmission Date: 20091009
  Serious: Yes (Hospitalization)
  Sender: FDA-Public Use
  Company Number: PHHY2008MX31051

PATIENT
  Age: 68 Year
  Sex: Female

DRUGS (3)
  1. ACLASTA [Suspect]
     Indication: OSTEOPOROSIS
     Dosage: 5 MG/100 ML
     Dates: start: 20071201
  2. BI-EUGLUCON [Concomitant]
     Indication: DIABETES MELLITUS
     Dosage: 1 TABLET (500/ 5 MG) PER DAY
  3. BI-EUGLUCON [Concomitant]
     Dosage: 2 TABLETS PER DAY

REACTIONS (3)
  - BLOOD GLUCOSE INCREASED [None]
  - FALL [None]
  - RIB FRACTURE [None]
